FAERS Safety Report 8901877 (Version 1)
Quarter: 2012Q4

REPORT INFORMATION
  Report Type: Spontaneous
  Country: US (occurrence: None)
  Receive Date: 20121109
  Receipt Date: 20121109
  Transmission Date: 20130627
  Serious: No
  Sender: FDA-Public Use
  Company Number: None

PATIENT
  Age: 16 Year
  Sex: Female

DRUGS (1)
  1. RAPAMUNE [Suspect]
     Indication: LIVER TRANSPLANT
     Route: 048
     Dates: start: 20100310

REACTIONS (5)
  - Chest pain [None]
  - Pain in extremity [None]
  - Hypertension [None]
  - Protein urine [None]
  - Abdominal distension [None]
